FAERS Safety Report 13184245 (Version 2)
Quarter: 2017Q1

REPORT INFORMATION
  Report Type: Report from Study
  Country: JP (occurrence: JP)
  Receive Date: 20170203
  Receipt Date: 20170310
  Transmission Date: 20170428
  Serious: Yes (Death)
  Sender: FDA-Public Use
  Company Number: JP-UCBSA-2017003688

PATIENT
  Age: 12 Year
  Sex: Male
  Weight: 52 kg

DRUGS (4)
  1. LEVETIRACETAM. [Suspect]
     Active Substance: LEVETIRACETAM
     Dosage: 375 MG, 2X/DAY (BID)
     Route: 048
     Dates: start: 20160813, end: 20170111
  2. LEVETIRACETAM. [Suspect]
     Active Substance: LEVETIRACETAM
     Indication: PARTIAL SEIZURES WITH SECONDARY GENERALISATION
     Dosage: 250 MG, 2X/DAY (BID)
     Route: 048
     Dates: start: 20160805, end: 20160807
  3. LEVETIRACETAM. [Suspect]
     Active Substance: LEVETIRACETAM
     Dosage: 500 MG, 2X/DAY (BID)
     Route: 048
     Dates: start: 20170112, end: 20170122
  4. LEVETIRACETAM. [Suspect]
     Active Substance: LEVETIRACETAM
     Dosage: 500 MG, 2X/DAY (BID)
     Route: 048
     Dates: start: 20160808, end: 20160812

REACTIONS (2)
  - Somnolence [Recovering/Resolving]
  - Death [Fatal]

NARRATIVE: CASE EVENT DATE: 20160810
